FAERS Safety Report 8402538-9 (Version None)
Quarter: 2012Q2

REPORT INFORMATION
  Report Type: 
  Country: None (occurrence: None)
  Receive Date: 20120601
  Receipt Date: 20120529
  Transmission Date: 20120825
  Serious: Yes (Other)
  Sender: FDA-Public Use
  Company Number: PHHO2011IE04678

PATIENT
  Sex: Male
  Weight: 92.2 kg

DRUGS (15)
  1. WARFARIN SODIUM [Concomitant]
  2. ATENOLOL [Concomitant]
  3. INSULIN [Concomitant]
  4. ESIDRIX [Suspect]
     Indication: CARDIOVASCULAR DISORDER
     Dosage: ACTIVE RUN-IN PHASE
  5. ESIDRIX [Suspect]
     Indication: CARDIOVASCULAR DISORDER
     Dosage: 25 MG, QD
     Route: 048
     Dates: end: 20110309
  6. TICLOPIDINE HCL [Concomitant]
  7. BLINDED ALISKIREN [Suspect]
     Indication: CARDIOVASCULAR DISORDER
     Dosage: ACTIVE RUN-IN PHASE
  8. AMLODIPINE [Suspect]
     Indication: CARDIOVASCULAR DISORDER
     Dosage: ACTIVE RUN-IN PHASE
  9. PLACEBO [Suspect]
     Indication: CARDIOVASCULAR DISORDER
     Dosage: ACTIVE RUN-IN PHASE
  10. ATORVASTATIN CALCIUM [Concomitant]
  11. ALISKIREN [Suspect]
     Indication: CARDIOVASCULAR DISORDER
     Dosage: 300 MG, QD
     Route: 048
     Dates: end: 20110309
  12. PERINDOPRIL ERBUMINE [Concomitant]
  13. CLOPIDOGREL [Concomitant]
  14. BLINDED NO TREATMENT RECEIVED [Suspect]
     Indication: CARDIOVASCULAR DISORDER
     Dosage: ACTIVE RUN-IN PHASE
  15. ASPIRIN [Concomitant]

REACTIONS (4)
  - DIARRHOEA [None]
  - DIZZINESS [None]
  - DRUG INTOLERANCE [None]
  - ABDOMINAL PAIN [None]
